FAERS Safety Report 5861213-5 (Version None)
Quarter: 2008Q3

REPORT INFORMATION
  Report Type: 
  Country: None (occurrence: None)
  Receive Date: 20080827
  Receipt Date: 20080320
  Transmission Date: 20090109
  Serious: No
  Sender: FDA-Public Use
  Company Number: US-ABBOTT-08P-163-0443382-00

PATIENT
  Sex: Female
  Weight: 86.26 kg

DRUGS (5)
  1. COATED PDS [Suspect]
     Indication: BLOOD TRIGLYCERIDES
     Dosage: ORANGE
     Route: 048
     Dates: start: 20080306
  2. COATED PDS [Suspect]
     Indication: BLOOD CHOLESTEROL
  3. THYROID TAB [Concomitant]
     Indication: DRUG USE FOR UNKNOWN INDICATION
  4. WATER PILL [Concomitant]
     Indication: BLOOD PRESSURE
  5. FISH OIL PRESCRIPTION [Concomitant]
     Indication: DRUG USE FOR UNKNOWN INDICATION

REACTIONS (3)
  - BALANCE DISORDER [None]
  - DIZZINESS [None]
  - NAUSEA [None]
